FAERS Safety Report 5742933-X (Version None)
Quarter: 2008Q2

REPORT INFORMATION
  Report Type: 
  Country: None (occurrence: None)
  Receive Date: 20080519
  Receipt Date: 20080318
  Transmission Date: 20081010
  Serious: Yes (Other)
  Sender: FDA-Public Use
  Company Number: JP-ASTRAZENECA-2008AP03695

PATIENT
  Age: 92 Year

DRUGS (1)
  1. MEROPENEM [Suspect]

REACTIONS (1)
  - RENAL DISORDER [None]
